FAERS Safety Report 18886034 (Version 6)
Quarter: 2023Q1

REPORT INFORMATION
  Report Type: Spontaneous
  Country: GB (occurrence: GB)
  Receive Date: 20210212
  Receipt Date: 20230113
  Transmission Date: 20230418
  Serious: Yes (Death, Hospitalization)
  Sender: FDA-Public Use
  Company Number: GB-ROCHE-2559355

PATIENT
  Age: 74 Year
  Sex: Female

DRUGS (55)
  1. LETROZOLE [Suspect]
     Active Substance: LETROZOLE
     Indication: Breast cancer metastatic
     Dosage: 2.5 MILLIGRAM, DAILY
     Route: 048
     Dates: start: 20171128
  2. CAPECITABINE [Suspect]
     Active Substance: CAPECITABINE
     Indication: Breast cancer metastatic
     Dosage: 2000 MILLIGRAM, BID, MOST RECENT DOSE PRIOR TO AE 14/FEB/2020
     Route: 048
     Dates: start: 20191204, end: 20200214
  3. CAPECITABINE [Suspect]
     Active Substance: CAPECITABINE
     Dosage: 1800 MILLIGRAM, 2/WEEK
     Route: 048
     Dates: start: 20191011, end: 20191127
  4. CAPECITABINE [Suspect]
     Active Substance: CAPECITABINE
     Dosage: 1800 MILLIGRAM (DOSE MODIFIED)
     Route: 048
     Dates: start: 20191011, end: 20191127
  5. PERTUZUMAB [Suspect]
     Active Substance: PERTUZUMAB
     Indication: Breast cancer metastatic
     Dosage: 420 MILLIGRAM,  (DRUG DISCONTINUED DUE TO DISEASE PROGRESSION FURTHER ANTICANCER TREATMENT)
     Route: 042
     Dates: start: 20190118, end: 20190711
  6. PERTUZUMAB [Suspect]
     Active Substance: PERTUZUMAB
     Dosage: 420 MILLIGRAM,  (DRUG DISCONTINUED DUE TO DISEASE PROGRESSION FURTHER ANTICANCER TREATMENT)
     Route: 042
     Dates: start: 20180503, end: 20181115
  7. PERTUZUMAB [Suspect]
     Active Substance: PERTUZUMAB
     Dosage: 840 MILLIGRAM, 1 DOSE/3 WEEKS, 840 MILLIGRAM, Q3WK
     Route: 042
     Dates: start: 20180116, end: 20180116
  8. TRASTUZUMAB [Suspect]
     Active Substance: TRASTUZUMAB
     Indication: Breast cancer metastatic
     Dosage: 588 MILLIGRAM,  (DRUG DISCONTINUED DUE TO DISEASE PROGRESSION FURTHER ANTICANCER TREATMENT)
     Route: 042
     Dates: start: 20180503, end: 20181115
  9. TRASTUZUMAB [Suspect]
     Active Substance: TRASTUZUMAB
     Dosage: 588 MILLIGRAM, 1 DOSE/3 WEEKS
     Route: 042
     Dates: start: 20190118
  10. TRASTUZUMAB [Suspect]
     Active Substance: TRASTUZUMAB
     Dosage: 882 MILLIGRAM, (DOSE MODIFIED)
     Route: 042
     Dates: start: 20180116, end: 20180116
  11. XGEVA [Suspect]
     Active Substance: DENOSUMAB
     Indication: Product used for unknown indication
     Dosage: 120 MG, MOST RECENT DOSE PRIOR TO AE 14/FEB/2020; PHARMACEUTICAL DOSE FORM: 231
     Route: 058
     Dates: start: 20180503, end: 20200214
  12. SODIUM CHLORIDE [Concomitant]
     Active Substance: SODIUM CHLORIDE
     Indication: Hypokalaemia
     Dosage: 1 OTHER, QD
     Route: 042
     Dates: start: 20190329, end: 20190401
  13. SODIUM CHLORIDE [Concomitant]
     Active Substance: SODIUM CHLORIDE
     Dosage: UNK, QD
     Route: 058
     Dates: start: 20190329, end: 20190401
  14. AMOXICILLIN [Concomitant]
     Active Substance: AMOXICILLIN
     Indication: Urinary tract infection
     Dosage: 500 MILLIGRAM, 1DOSE/8HR
     Route: 042
     Dates: start: 20190330, end: 20190401
  15. ASPIRIN [Concomitant]
     Active Substance: ASPIRIN
     Indication: Product used for unknown indication
     Dosage: 75 MILLIGRAM, DAILY
     Route: 048
     Dates: start: 2019, end: 2019
  16. CEPHALEXIN [Concomitant]
     Active Substance: CEPHALEXIN
     Indication: Urinary tract infection
     Dosage: UNK
     Route: 048
     Dates: start: 20190208, end: 2019
  17. CLOTRIMAZOLE [Concomitant]
     Active Substance: CLOTRIMAZOLE
     Indication: Product used for unknown indication
     Dosage: 1 PERCENT, BID
     Route: 061
     Dates: start: 202002
  18. COCODAMOL [Concomitant]
     Active Substance: ACETAMINOPHEN\CODEINE PHOSPHATE
     Indication: Product used for unknown indication
     Dosage: 30 MILLIGRAM, PRN, UNTIL 12-MAY-2020
     Route: 048
  19. CYCLIZINE [Concomitant]
     Active Substance: CYCLIZINE
     Indication: Product used for unknown indication
     Dosage: 50 MILLIGRAM, 1DOSE/8HR
     Route: 048
     Dates: start: 2019
  20. DEXAMETHASONE [Concomitant]
     Active Substance: DEXAMETHASONE
     Indication: Metastases to central nervous system
     Dosage: 4 MILLIGRAM, 2 DOSE, DAILY
     Route: 048
     Dates: start: 20190110, end: 2019
  21. DEXAMETHASONE [Concomitant]
     Active Substance: DEXAMETHASONE
     Dosage: 6 MILLIGRAM, BID
     Route: 048
  22. DEXAMETHASONE [Concomitant]
     Active Substance: DEXAMETHASONE
     Dosage: 8 MILLIGRAM, BID
     Route: 048
  23. DEXAMETHASONE [Concomitant]
     Active Substance: DEXAMETHASONE
     Dosage: 2 MILLIGRAM, DAILY
     Route: 048
     Dates: start: 20190425
  24. DEXAMETHASONE [Concomitant]
     Active Substance: DEXAMETHASONE
     Dosage: 4 MILLIGRAM, BID
     Route: 048
     Dates: start: 20190417, end: 20190424
  25. DEXAMETHASONE [Concomitant]
     Active Substance: DEXAMETHASONE
     Dosage: 8 MILLIGRAM, BID
     Route: 048
  26. ENOXAPARIN [Concomitant]
     Active Substance: ENOXAPARIN
     Indication: Product used for unknown indication
     Dosage: 80 MILLIGRAM, 1 DOSE, DAILY
     Route: 058
     Dates: start: 202002
  27. FOLIC ACID [Concomitant]
     Active Substance: FOLIC ACID
     Indication: Product used for unknown indication
     Dosage: 5 MILLIGRAM, 1 DOSE, DAILY
     Route: 048
     Dates: start: 20160211
  28. GLYCOPYRROLATE [Concomitant]
     Active Substance: GLYCOPYRROLATE
     Indication: Product used for unknown indication
     Dosage: 400 MICROGRAM, UNK
     Route: 058
     Dates: start: 20190330
  29. HYDROCORTISONE [Concomitant]
     Active Substance: HYDROCORTISONE
     Indication: Product used for unknown indication
     Dosage: 0.5 PERCENT, UNK
     Route: 061
     Dates: start: 20191025
  30. LACOSAMIDE [Concomitant]
     Active Substance: LACOSAMIDE
     Indication: Product used for unknown indication
     Dosage: 100 MILLIGRAM, BID
     Route: 048
     Dates: start: 20200519
  31. LACOSAMIDE [Concomitant]
     Active Substance: LACOSAMIDE
     Dosage: 50 MILLIGRAM, BID
     Route: 048
     Dates: start: 20200512, end: 20200519
  32. LANSOPRAZOLE [Concomitant]
     Active Substance: LANSOPRAZOLE
     Indication: Metastases to central nervous system
     Dosage: 30 MILLIGRAM, DAILY
     Route: 048
     Dates: start: 201812
  33. LANSOPRAZOLE [Concomitant]
     Active Substance: LANSOPRAZOLE
     Indication: Metastases to central nervous system
  34. LEVETIRACETAM [Concomitant]
     Active Substance: LEVETIRACETAM
     Indication: Seizure
     Dosage: 1500 MILLIGRAM, BID
     Route: 048
  35. LEVETIRACETAM [Concomitant]
     Active Substance: LEVETIRACETAM
     Dosage: 250 MILLIGRAM, UNK
     Route: 048
  36. METFORMIN [Concomitant]
     Active Substance: METFORMIN HYDROCHLORIDE
     Indication: Product used for unknown indication
     Dosage: 500 MILLIGRAM, DAILY
     Route: 048
     Dates: start: 2018, end: 2018
  37. METRONIDAZOLE [Concomitant]
     Active Substance: METRONIDAZOLE
     Indication: Diarrhoea
     Dosage: 400 MILLIGRAM, TID
     Route: 048
     Dates: start: 20190401, end: 20190403
  38. MIDAZOLAM [Concomitant]
     Active Substance: MIDAZOLAM
     Indication: Product used for unknown indication
     Dosage: 2.5 MILLIGRAM, UNK
     Route: 058
  39. MIDAZOLAM [Concomitant]
     Active Substance: MIDAZOLAM
     Dosage: 10 MILLIGRAM, UNK
     Route: 050
     Dates: start: 2020
  40. MIDAZOLAM [Concomitant]
     Active Substance: MIDAZOLAM
     Dosage: 30 MILLIGRAM, UNK
     Route: 058
     Dates: start: 2020
  41. MIDAZOLAM [Concomitant]
     Active Substance: MIDAZOLAM
     Dosage: 30 MILLIGRAM, UNK
     Route: 058
  42. MORPHINE SULFATE [Concomitant]
     Active Substance: MORPHINE SULFATE
     Indication: Product used for unknown indication
     Dosage: 2.5 MILLIGRAM, UNK
     Route: 058
     Dates: start: 20190330
  43. NIFEDIPINE [Concomitant]
     Active Substance: NIFEDIPINE
     Indication: Product used for unknown indication
     Dosage: 60 MILLIGRAM, DAILY
     Route: 048
  44. NITROFURANTOIN [Concomitant]
     Active Substance: NITROFURANTOIN
     Indication: Urinary tract infection
     Dosage: 50 MILLIGRAM, 1DOSE/6HOUR
     Route: 048
     Dates: start: 20190403, end: 20190405
  45. SALINE ORAL OTC [Concomitant]
     Active Substance: SODIUM CHLORIDE
     Indication: Hypokalaemia
     Dosage: UNK
     Route: 042
     Dates: start: 20190329, end: 20190401
  46. NYSTATIN [Concomitant]
     Active Substance: NYSTATIN
     Indication: Product used for unknown indication
     Dosage: 1 MILLIGRAM/ 4 DAYS
     Route: 048
     Dates: start: 20200505
  47. ONDANSETRON [Concomitant]
     Active Substance: ONDANSETRON
     Indication: Product used for unknown indication
     Dosage: 4 MILLIGRAM, 3 DOSE, DAILY
     Route: 048
     Dates: start: 2019
  48. ACETAMINOPHEN [Concomitant]
     Active Substance: ACETAMINOPHEN
     Indication: Product used for unknown indication
     Dosage: 500 MILLIGRAM, UNK
     Route: 048
  49. POTASSIUM CHLORIDE [Concomitant]
     Active Substance: POTASSIUM CHLORIDE
     Indication: Hypokalaemia
     Dosage: 1 OTHER, QD
     Route: 042
     Dates: start: 20190329, end: 20190401
  50. PROCHLORPERAZINE [Concomitant]
     Active Substance: PROCHLORPERAZINE
     Indication: Product used for unknown indication
     Dosage: 3 MILLIGRAM, 2 DOSE, DAILY
     Route: 065
     Dates: start: 2020
  51. ROSUVASTATIN [Concomitant]
     Active Substance: ROSUVASTATIN
     Indication: Product used for unknown indication
     Dosage: 5 MILLIGRAM, DAILY
     Route: 048
  52. SERTRALINE [Concomitant]
     Active Substance: SERTRALINE HYDROCHLORIDE
     Indication: Product used for unknown indication
     Dosage: 50 MILLIGRAM, DAILY
     Route: 048
  53. SIMVASTATIN [Concomitant]
     Active Substance: SIMVASTATIN
     Indication: Product used for unknown indication
     Dosage: 20 MILLIGRAM, DAILY
     Route: 048
     Dates: start: 2019
  54. VANCOMYCIN [Concomitant]
     Active Substance: VANCOMYCIN
     Indication: Product used for unknown indication
     Dosage: 125 MILLIGRAM, QID
     Route: 050
     Dates: start: 20200302, end: 20200316
  55. CEPHALEXIN [Concomitant]
     Active Substance: CEPHALEXIN
     Indication: Product used for unknown indication

REACTIONS (3)
  - Disease progression [Fatal]
  - Dyspnoea [Recovered/Resolved]
  - Off label use [Unknown]

NARRATIVE: CASE EVENT DATE: 20200224
